FAERS Safety Report 8228049-1 (Version None)
Quarter: 2012Q1

REPORT INFORMATION
  Report Type: 
  Country: None (occurrence: None)
  Receive Date: 20120322
  Receipt Date: 20120111
  Transmission Date: 20120608
  Serious: No
  Sender: FDA-Public Use
  Company Number: US-BRISTOL-MYERS SQUIBB COMPANY-16344285

PATIENT
  Age: 57 Year
  Sex: Male
  Weight: 96 kg

DRUGS (1)
  1. ERBITUX [Suspect]
     Indication: COLON CANCER METASTATIC
     Dosage: 1DF=250 M2
     Dates: start: 20111201

REACTIONS (1)
  - BLOOD BILIRUBIN INCREASED [None]
